FAERS Safety Report 8927166 (Version 1)
Quarter: 2012Q4

REPORT INFORMATION
  Report Type: 
  Country: US (occurrence: US)
  Receive Date: 20121127
  Receipt Date: 20121127
  Transmission Date: 20130627
  Serious: No
  Sender: FDA-Public Use
  Company Number: US-BAYER-2012-114841

PATIENT
  Age: 75 Year
  Sex: Male
  Weight: 78.01 kg

DRUGS (8)
  1. ALEVE CAPLET/TABLET,MIDOL EXTENDED RELIEF CAPLET [Suspect]
     Indication: GENERAL BODY PAIN
     Dosage: 1 DF, BID
     Route: 048
     Dates: start: 20121003
  2. ZETIA [Concomitant]
  3. PRAVASTATIN [Concomitant]
  4. OS-CAL + D [CALCIUM CARBONATE,COLECALCIFEROL] [Concomitant]
  5. VITAMIN C [Concomitant]
  6. FISH OIL [Concomitant]
  7. MULTI VITAMIN [Concomitant]
  8. BAYER ASPIRIN [Concomitant]

REACTIONS (2)
  - Hypertension [None]
  - Incorrect drug administration duration [Not Recovered/Not Resolved]
